FAERS Safety Report 9204954 (Version 1)
Quarter: 2013Q1

REPORT INFORMATION
  Report Type: Spontaneous
  Country: US (occurrence: None)
  Receive Date: 20120709
  Receipt Date: 20120709
  Transmission Date: 20140127
  Serious: No
  Sender: FDA-Public Use
  Company Number: 2012HGS-003474

PATIENT
  Age: 65 Year
  Sex: Female
  Weight: 102.51 kg

DRUGS (1)
  1. BENLYSTA [Suspect]
     Indication: SYSTEMIC LUPUS ERYTHEMATOSUS
     Route: 041
     Dates: start: 20120330

REACTIONS (3)
  - Blood pressure increased [None]
  - Vision blurred [None]
  - Migraine [None]
